FAERS Safety Report 6094623-4 (Version None)
Quarter: 2009Q1

REPORT INFORMATION
  Report Type: 
  Country: None (occurrence: None)
  Receive Date: 20090226
  Receipt Date: 20090220
  Transmission Date: 20090719
  Serious: Yes (Other)
  Sender: FDA-Public Use
  Company Number: PHHY2009FR06290

PATIENT
  Age: 61 Year
  Sex: Female

DRUGS (1)
  1. GLEEVEC [Suspect]
     Indication: GASTROINTESTINAL STROMAL TUMOUR
     Dosage: 800 MG DAILY

REACTIONS (5)
  - ERYTHEMA [None]
  - ERYTHROMELALGIA [None]
  - EXTREMITY NECROSIS [None]
  - FEELING HOT [None]
  - PAIN IN EXTREMITY [None]
